FAERS Safety Report 8595914 (Version 2)
Quarter: 2013Q3

REPORT INFORMATION
  Report Type: Spontaneous
  Country: US (occurrence: US)
  Receive Date: 20120605
  Receipt Date: 20130722
  Transmission Date: 20140515
  Serious: Yes (Hospitalization, Disabling, Other)
  Sender: FDA-Public Use
  Company Number: US-ASTRAZENECA-2012SE35147

PATIENT
  Age: 53 Year
  Sex: Female
  Weight: 44 kg

DRUGS (14)
  1. NEXIUM [Suspect]
     Indication: DYSPEPSIA
     Dosage: TWO TIMES DAILY
     Route: 048
     Dates: start: 2006, end: 2011
  2. NEXIUM [Suspect]
     Indication: ULCER
     Dosage: TWO TIMES DAILY
     Route: 048
     Dates: start: 2006, end: 2011
  3. TUMS [Concomitant]
  4. FENTANYL [Concomitant]
     Indication: SPINAL FRACTURE
     Dates: start: 2000, end: 2013
  5. HYDROCODONE [Concomitant]
     Indication: PAIN
     Dosage: 10-325
     Dates: start: 2003
  6. LISINOPRIL [Concomitant]
     Indication: HYPERTENSION
  7. FUROSEMIDE [Concomitant]
     Indication: FLUID IMBALANCE
  8. TRAZODONE [Concomitant]
     Indication: SLEEP DISORDER
  9. TRAZODONE [Concomitant]
     Indication: PAIN
  10. AMITRIPTYLINE [Concomitant]
     Indication: SLEEP DISORDER
  11. AMITRIPTYLINE [Concomitant]
     Indication: PAIN
  12. HYDROCORTISONE [Concomitant]
  13. VICODIN [Concomitant]
  14. ASPIRIN [Concomitant]

REACTIONS (22)
  - Spinal fracture [Unknown]
  - Ankle fracture [Unknown]
  - Foot fracture [Unknown]
  - Upper limb fracture [Unknown]
  - Diverticulitis [Unknown]
  - Fall [Unknown]
  - Brain neoplasm [Unknown]
  - Osteoporosis [Unknown]
  - Multiple fractures [Unknown]
  - Pneumonia [Unknown]
  - Rib fracture [Unknown]
  - Gastrointestinal disorder [Unknown]
  - Chronic obstructive pulmonary disease [Unknown]
  - Cushing^s syndrome [Unknown]
  - Glucose tolerance impaired [Unknown]
  - Vitamin D deficiency [Unknown]
  - Bone lesion [Unknown]
  - Arthritis [Unknown]
  - Osteogenesis imperfecta [Unknown]
  - Calcium deficiency [Unknown]
  - Cataract [Unknown]
  - Depression [Unknown]
